FAERS Safety Report 4436217-X (Version None)
Quarter: 2004Q3

REPORT INFORMATION
  Report Type: 
  Country: None (occurrence: None)
  Receive Date: 20040830
  Receipt Date: 20040525
  Transmission Date: 20050211
  Serious: No
  Sender: FDA-Public Use
  Company Number: US-BRISTOL-MYERS SQUIBB COMPANY-12596490

PATIENT
  Age: 42 Year
  Sex: Female
  Weight: 103 kg

DRUGS (5)
  1. ERBITUX [Suspect]
     Indication: COLON CANCER
     Dosage: 1ST INFUSION 844 MG, 2ND INFUSION 844 MG (A WK LATER), 3RD DOSE HELD
     Route: 042
     Dates: start: 20040501, end: 20040501
  2. BENADRYL [Concomitant]
     Indication: PREMEDICATION
  3. DECADRON [Concomitant]
     Indication: PREMEDICATION
  4. ALOXI [Concomitant]
     Indication: PREMEDICATION
  5. ATROPINE [Concomitant]
     Indication: PREMEDICATION

REACTIONS (4)
  - MEDICATION ERROR [None]
  - OVERDOSE [None]
  - PAIN OF SKIN [None]
  - RASH [None]
